FAERS Safety Report 7451936-9 (Version None)
Quarter: 2011Q2

REPORT INFORMATION
  Report Type: 
  Country: None (occurrence: None)
  Receive Date: 20110425
  Receipt Date: 20110408
  Transmission Date: 20111010
  Serious: Yes (Other)
  Sender: FDA-Public Use
  Company Number: 2011MA003662

PATIENT
  Sex: Female

DRUGS (1)
  1. METOCLOPRAMIDE [Suspect]
     Dates: start: 20080501, end: 20100501

REACTIONS (5)
  - CONVULSION [None]
  - MYOCLONUS [None]
  - PARKINSON'S DISEASE [None]
  - EMOTIONAL DISTRESS [None]
  - ECONOMIC PROBLEM [None]
